FAERS Safety Report 9078789 (Version 1)
Quarter: 2013Q1

REPORT INFORMATION
  Report Type: Report from Study
  Country: US (occurrence: US)
  Receive Date: 20130130
  Receipt Date: 20130130
  Transmission Date: 20140127
  Serious: No
  Sender: FDA-Public Use
  Company Number: US-ABBOTT-12P-163-0976802-00

PATIENT
  Age: 49 Year
  Sex: Female

DRUGS (7)
  1. HUMIRA [Suspect]
     Indication: CROHN^S DISEASE
     Dates: start: 2007
  2. AZATHIOPRINE [Concomitant]
     Indication: CROHN^S DISEASE
     Dosage: 50MG DAILY
  3. CITALOPRAM [Concomitant]
     Indication: ANXIETY
     Dosage: 40MG DAILY
  4. CLONAZEPAM [Concomitant]
     Indication: ANXIETY
     Dosage: AS NEEDED
  5. OMEPRAZOLE [Concomitant]
     Indication: GASTROOESOPHAGEAL REFLUX DISEASE
     Dosage: 20MG DAILY
  6. CLONIDINE [Concomitant]
     Indication: BLOOD PRESSURE
     Dosage: DAILY
  7. TRAMADOL [Concomitant]
     Indication: PAIN
     Dosage: DAILY

REACTIONS (6)
  - Dry mouth [Not Recovered/Not Resolved]
  - Injection site pain [Not Recovered/Not Resolved]
  - Injection site bruising [Not Recovered/Not Resolved]
  - Sinusitis [Not Recovered/Not Resolved]
  - Dry throat [Not Recovered/Not Resolved]
  - Tooth disorder [Not Recovered/Not Resolved]
